FAERS Safety Report 5179637-0 (Version None)
Quarter: 2006Q4

REPORT INFORMATION
  Report Type: 
  Country: None (occurrence: None)
  Receive Date: 20061211
  Receipt Date: 20061130
  Transmission Date: 20070319
  Serious: Yes (Hospitalization, Other)
  Sender: FDA-Public Use
  Company Number: 2006-02079

PATIENT
  Age: 49 Year
  Sex: Female
  Weight: 74.7 kg

DRUGS (15)
  1. VELCADE [Suspect]
     Indication: MULTIPLE MYELOMA
     Dosage: 1.30 MG/M2,
     Dates: start: 20060707, end: 20060714
  2. DOXIL [Suspect]
     Indication: MULTIPLE MYELOMA
     Dosage: 30.00 MG/M2,
     Dates: start: 20060710, end: 20060710
  3. DECADRON [Suspect]
     Indication: MULTIPLE MYELOMA
     Dosage: 40.00 MG,
     Dates: start: 20060707, end: 20060715
  4. WARFARIN SODIUM [Concomitant]
  5. CORTISONE ACETATE [Concomitant]
  6. CODEINE SUL TAB [Concomitant]
  7. MORPHINE [Concomitant]
  8. NEURONTIN [Concomitant]
  9. CELEXA [Concomitant]
  10. BACTRIM [Concomitant]
  11. DIFLUCAN [Concomitant]
  12. SENOKOT [Concomitant]
  13. ATIVAN [Concomitant]
  14. PERCOCET [Concomitant]
  15. HYDROXYUREA [Concomitant]

REACTIONS (17)
  - ASTHENIA [None]
  - BLOOD GLUCOSE INCREASED [None]
  - BLOOD PRESSURE INCREASED [None]
  - BLOOD SODIUM DECREASED [None]
  - CEREBRAL INFARCTION [None]
  - DRUG INEFFECTIVE [None]
  - DYSPHONIA [None]
  - GRAND MAL CONVULSION [None]
  - HEADACHE [None]
  - HEART RATE DECREASED [None]
  - HYPERTENSION [None]
  - NAUSEA [None]
  - PARAESTHESIA [None]
  - REVERSIBLE POSTERIOR LEUKOENCEPHALOPATHY SYNDROME [None]
  - SOMNOLENCE [None]
  - VISION BLURRED [None]
  - VOMITING [None]
